FAERS Safety Report 23182757 (Version 1)
Quarter: 2023Q4

REPORT INFORMATION
  Report Type: Spontaneous
  Country: US (occurrence: None)
  Receive Date: 20231114
  Receipt Date: 20231114
  Transmission Date: 20240109
  Serious: No
  Sender: FDA-Public Use
  Company Number: None

PATIENT
  Age: 62 Year
  Sex: Female

DRUGS (3)
  1. AUSTEDO XR [Suspect]
     Active Substance: DEUTETRABENAZINE
     Indication: Tardive dyskinesia
     Dosage: FREQUENCY : DAILY;?
     Route: 048
     Dates: start: 20231111, end: 20231111
  2. EXCEDRIN EXTRA STRENGTH CAPLETS [Concomitant]
     Active Substance: ACETAMINOPHEN\ASPIRIN\CAFFEINE
  3. Nexium 40mg Capsules [Concomitant]

REACTIONS (7)
  - Drug intolerance [None]
  - Dizziness [None]
  - Dizziness [None]
  - Hallucination, visual [None]
  - Enuresis [None]
  - Euphoric mood [None]
  - Cognitive disorder [None]

NARRATIVE: CASE EVENT DATE: 20231111
